FAERS Safety Report 9034293 (Version 1)
Quarter: 2013Q1

REPORT INFORMATION
  Report Type: Spontaneous
  Country: CA (occurrence: CA)
  Receive Date: 20130128
  Receipt Date: 20130128
  Transmission Date: 20140127
  Serious: Yes (Death, Other)
  Sender: FDA-Public Use
  Company Number: CA-AMGEN-CANSP2012068031

PATIENT
  Sex: Male

DRUGS (3)
  1. ENBREL [Suspect]
     Indication: RHEUMATOID ARTHRITIS
     Dosage: UNK UNK, QWK
     Dates: start: 20051129, end: 201007
  2. PREDNISONE [Concomitant]
     Dosage: 0.5 MG, UNK
  3. TYLENOL /00020001/ [Concomitant]
     Dosage: UNK

REACTIONS (2)
  - Multi-organ failure [Fatal]
  - Respiratory disorder [Unknown]
